FAERS Safety Report 8022511-2 (Version None)
Quarter: 2012Q1

REPORT INFORMATION
  Report Type: 
  Country: None (occurrence: None)
  Receive Date: 20120104
  Receipt Date: 20120103
  Transmission Date: 20120608
  Serious: Yes (Hospitalization)
  Sender: FDA-Public Use
  Company Number: US-GLAXOSMITHKLINE-A0779975A

PATIENT
  Age: 57 Year
  Sex: Female
  Weight: 95.5 kg

DRUGS (8)
  1. TOPROL-XL [Concomitant]
  2. ALTOCOR [Concomitant]
  3. DIOVAN [Concomitant]
  4. ATENOLOL [Concomitant]
  5. AVANDIA [Suspect]
     Indication: TYPE 2 DIABETES MELLITUS
     Dosage: 8MG PER DAY
     Route: 048
     Dates: start: 20000101, end: 20030101
  6. GLUCOPHAGE [Concomitant]
  7. PRAVASTATIN [Concomitant]
  8. CLONIDINE [Concomitant]

REACTIONS (1)
  - CEREBROVASCULAR ACCIDENT [None]
